FAERS Safety Report 16591470 (Version 4)
Quarter: 2019Q3

REPORT INFORMATION
  Report Type: Spontaneous
  Country: US (occurrence: US)
  Receive Date: 20190718
  Receipt Date: 20190925
  Transmission Date: 20191004
  Serious: Yes (Other)
  Sender: FDA-Public Use
  Company Number: US-PFIZER INC-2019307900

PATIENT
  Age: 76 Year
  Sex: Female
  Weight: 63.39 kg

DRUGS (2)
  1. LYRICA [Suspect]
     Active Substance: PREGABALIN
     Indication: NEURALGIA
     Dosage: 150 MG, 3X/DAY
  2. LYRICA [Suspect]
     Active Substance: PREGABALIN
     Dosage: 150 MG, 2X/DAY (ONE IN THE MORNING AND ONE IN THE AFTERNOON)
     Route: 048

REACTIONS (3)
  - Back disorder [Unknown]
  - Nerve injury [Unknown]
  - Dementia Alzheimer^s type [Unknown]
